FAERS Safety Report 11055646 (Version 1)
Quarter: 2015Q2

REPORT INFORMATION
  Report Type: Spontaneous
  Country: GB (occurrence: GB)
  Receive Date: 20150422
  Receipt Date: 20150422
  Transmission Date: 20150821
  Serious: Yes (Hospitalization, Disabling)
  Sender: FDA-Public Use
  Company Number: GB-TEVA-556014ACC

PATIENT
  Age: 75 Year
  Sex: Male

DRUGS (5)
  1. CYANOCOBALAMIN. [Concomitant]
     Active Substance: CYANOCOBALAMIN
  2. PARACETAMOL [Concomitant]
     Active Substance: ACETAMINOPHEN
  3. ZOPICLONE [Concomitant]
     Active Substance: ZOPICLONE
  4. ZOLPIDEM [Suspect]
     Active Substance: ZOLPIDEM\ZOLPIDEM TARTRATE
     Indication: AGITATION
     Route: 048
     Dates: start: 20150401
  5. METFORMIN [Concomitant]
     Active Substance: METFORMIN HYDROCHLORIDE

REACTIONS (3)
  - Delirium [Not Recovered/Not Resolved]
  - Aggression [Unknown]
  - Dementia Alzheimer^s type [Unknown]

NARRATIVE: CASE EVENT DATE: 20150402
